FAERS Safety Report 15463639 (Version 17)
Quarter: 2019Q3

REPORT INFORMATION
  Report Type: Report from Study
  Country: JP (occurrence: JP)
  Receive Date: 20181004
  Receipt Date: 20190828
  Transmission Date: 20191004
  Serious: Yes (Hospitalization, Disabling, Other)
  Sender: FDA-Public Use
  Company Number: JP-ROCHE-2190972

PATIENT
  Age: 54 Year
  Sex: Male
  Weight: 62.5 kg

DRUGS (27)
  1. MAGNESIUM OXIDE. [Concomitant]
     Active Substance: MAGNESIUM OXIDE
     Indication: CONSTIPATION
     Route: 048
     Dates: start: 20181018, end: 20181020
  2. MAGNESIUM OXIDE. [Concomitant]
     Active Substance: MAGNESIUM OXIDE
     Route: 048
     Dates: start: 20181021
  3. LOXOPROFEN SODIUM HYDRATE [Concomitant]
     Active Substance: LOXOPROFEN SODIUM DIHYDRATE
     Indication: WOUND COMPLICATION
     Route: 048
     Dates: start: 20180924, end: 20181005
  4. VONOPRAZAN FUMARATE [Concomitant]
     Active Substance: VONOPRAZAN FUMURATE
     Indication: PROPHYLAXIS
     Route: 048
     Dates: start: 20180921, end: 20180924
  5. VONOPRAZAN FUMARATE [Concomitant]
     Active Substance: VONOPRAZAN FUMURATE
     Route: 048
     Dates: start: 20181005
  6. HISHIPHAGEN COMBINATION [Concomitant]
     Indication: ASPARTATE AMINOTRANSFERASE INCREASED
  7. LIDOCAINE. [Concomitant]
     Active Substance: LIDOCAINE
     Indication: LOCAL ANAESTHESIA
     Route: 058
     Dates: start: 20181005, end: 20181005
  8. CELECOXIB. [Concomitant]
     Active Substance: CELECOXIB
     Indication: WOUND COMPLICATION
     Route: 048
     Dates: start: 20180831, end: 20180831
  9. ATEZOLIZUMAB. [Suspect]
     Active Substance: ATEZOLIZUMAB
     Indication: NON-SMALL CELL LUNG CANCER
     Dosage: DATE OF MOST RECENT DOSE OF ATEZOLIZUMAB OF 1200 MG PRIOR TO THE ONSET OF ATRIAL FIBRILLATION, HYPON
     Route: 042
     Dates: start: 20180907
  10. FOLIC ACID. [Concomitant]
     Active Substance: FOLIC ACID
     Route: 048
     Dates: start: 20180831, end: 20180903
  11. ACETAMINOPHEN. [Concomitant]
     Active Substance: ACETAMINOPHEN
     Route: 042
     Dates: start: 20180918
  12. SENNOSIDE [SENNOSIDE A+B] [Concomitant]
     Active Substance: SENNOSIDES A AND B
     Indication: CONSTIPATION
     Route: 048
     Dates: start: 20181011
  13. LOXOPROFEN SODIUM HYDRATE [Concomitant]
     Active Substance: LOXOPROFEN SODIUM DIHYDRATE
     Indication: SUBCUTANEOUS HAEMATOMA
     Route: 061
     Dates: start: 20180830, end: 20181128
  14. CLINDAMYCIN. [Concomitant]
     Active Substance: CLINDAMYCIN
     Indication: INFECTION PROPHYLAXIS
     Route: 042
     Dates: start: 20180830, end: 20180831
  15. HEPARINOID [Concomitant]
     Active Substance: CHONDROITIN SULFATE (BOVINE)
     Indication: DRY SKIN
     Route: 061
     Dates: start: 20181112
  16. ALENDRONATE SODIUM HYDRATE [Concomitant]
     Active Substance: ALENDRONATE SODIUM
     Route: 048
     Dates: start: 20181012, end: 20190822
  17. ACETAMINOPHEN. [Concomitant]
     Active Substance: ACETAMINOPHEN
     Indication: PYREXIA
     Route: 042
     Dates: start: 20180831, end: 20180901
  18. HISHIPHAGEN COMBINATION [Concomitant]
     Indication: ALANINE AMINOTRANSFERASE INCREASED
     Route: 042
     Dates: start: 20180928, end: 20181003
  19. BROTIZOLAM [Concomitant]
     Active Substance: BROTIZOLAM
     Indication: INSOMNIA
     Route: 048
     Dates: start: 20181005, end: 20181114
  20. SUVOREXANT. [Concomitant]
     Active Substance: SUVOREXANT
     Indication: INSOMNIA
     Route: 047
     Dates: start: 20181115, end: 20190107
  21. ACETAMINOPHEN. [Concomitant]
     Active Substance: ACETAMINOPHEN
     Indication: WOUND COMPLICATION
     Route: 048
     Dates: start: 20180901, end: 20181010
  22. ACETAMINOPHEN. [Concomitant]
     Active Substance: ACETAMINOPHEN
     Route: 042
     Dates: start: 20180921, end: 20180923
  23. DAIPHEN [Concomitant]
     Active Substance: SULFAMETHOXAZOLE\TRIMETHOPRIM
     Route: 048
     Dates: start: 20181005, end: 20181114
  24. DAIPHEN [Concomitant]
     Active Substance: SULFAMETHOXAZOLE\TRIMETHOPRIM
     Route: 048
     Dates: start: 20181115
  25. MECOBALAMIN [Concomitant]
     Active Substance: METHYLCOBALAMIN
     Route: 030
     Dates: start: 20180831, end: 20180831
  26. AZULENE [Concomitant]
     Active Substance: AZULENE
     Route: 061
     Dates: start: 20181114, end: 20181129
  27. WHITE PETROLATUM [Concomitant]
     Active Substance: PETROLATUM
     Route: 061
     Dates: start: 20181012, end: 20181114

REACTIONS (4)
  - Neuropathy peripheral [Not Recovered/Not Resolved]
  - Atrial fibrillation [Not Recovered/Not Resolved]
  - Hyponatraemia [Recovered/Resolved]
  - Pyrexia [Recovered/Resolved]

NARRATIVE: CASE EVENT DATE: 20180917
